FAERS Safety Report 7833852-3 (Version None)
Quarter: 2011Q4

REPORT INFORMATION
  Report Type: 
  Country: None (occurrence: None)
  Receive Date: 20111024
  Receipt Date: 20111013
  Transmission Date: 20120403
  Serious: Yes (Other)
  Sender: FDA-Public Use
  Company Number: FR-GLAXOSMITHKLINE-B0755030A

PATIENT
  Sex: Female

DRUGS (8)
  1. CISPLATIN [Suspect]
     Indication: CERVIX CANCER METASTATIC
     Dosage: 37MG PER DAY
     Route: 042
     Dates: start: 20110907, end: 20110908
  2. TRAMADOL HCL [Suspect]
     Indication: PRODUCT USED FOR UNKNOWN INDICATION
     Dosage: 100MG THREE TIMES PER DAY
     Route: 048
     Dates: start: 20110906
  3. KETOPROFEN [Suspect]
     Indication: PRODUCT USED FOR UNKNOWN INDICATION
     Route: 048
  4. SOLU-MEDROL [Suspect]
     Indication: PREMEDICATION
     Dosage: 60MG PER DAY
     Route: 042
     Dates: start: 20110906, end: 20110911
  5. HYCAMTIN [Suspect]
     Indication: CERVIX CANCER METASTATIC
     Dosage: 1.1MG PER DAY
     Route: 042
     Dates: start: 20110907, end: 20110909
  6. ACETAMINOPHEN [Suspect]
     Indication: PRODUCT USED FOR UNKNOWN INDICATION
     Route: 048
  7. EMEND [Suspect]
     Indication: PREMEDICATION
     Route: 042
     Dates: start: 20110906, end: 20110911
  8. PLITICAN [Suspect]
     Indication: PREMEDICATION
     Dosage: 200MG PER DAY
     Route: 042
     Dates: start: 20110906

REACTIONS (2)
  - CONDITION AGGRAVATED [None]
  - THROMBOCYTOSIS [None]
